FAERS Safety Report 11646323 (Version 2)
Quarter: 2016Q2

REPORT INFORMATION
  Report Type: Spontaneous
  Country: US (occurrence: US)
  Receive Date: 20151020
  Receipt Date: 20160429
  Transmission Date: 20160815
  Serious: No
  Sender: FDA-Public Use
  Company Number: US-ROCHE-1626699

PATIENT
  Sex: Male
  Weight: 90.8 kg

DRUGS (5)
  1. ESBRIET [Suspect]
     Active Substance: PIRFENIDONE
     Indication: IDIOPATHIC PULMONARY FIBROSIS
     Route: 048
     Dates: start: 20150218
  2. ESBRIET [Suspect]
     Active Substance: PIRFENIDONE
     Route: 048
  3. ESBRIET [Suspect]
     Active Substance: PIRFENIDONE
     Route: 048
     Dates: start: 20150225
  4. ESBRIET [Suspect]
     Active Substance: PIRFENIDONE
     Dosage: THREE CAPSULES THREE TIMES DAILY.
     Route: 048
  5. TUMS [Concomitant]
     Active Substance: CALCIUM CARBONATE

REACTIONS (6)
  - Epigastric discomfort [Not Recovered/Not Resolved]
  - Device breakage [Not Recovered/Not Resolved]
  - Dyspepsia [Unknown]
  - Drug intolerance [Not Recovered/Not Resolved]
  - Gastric disorder [Unknown]
  - Abdominal discomfort [Unknown]
